FAERS Safety Report 5955038-X (Version None)
Quarter: 2008Q4

REPORT INFORMATION
  Report Type: 
  Country: None (occurrence: None)
  Receive Date: 20081117
  Receipt Date: 20081105
  Transmission Date: 20090506
  Serious: Yes (Congenital Anomaly)
  Sender: FDA-Public Use
  Company Number: B0509459A

PATIENT
  Age: 33 Year
  Sex: Female

DRUGS (5)
  1. COMBIVIR [Suspect]
     Indication: HIV INFECTION
     Route: 065
  2. KALETRA [Suspect]
     Indication: HIV INFECTION
     Route: 065
  3. EFAVIRENZ [Concomitant]
  4. NEVIRAPINE [Concomitant]
  5. KIVEXA [Concomitant]

REACTIONS (1)
  - ABORTION INDUCED [None]
